FAERS Safety Report 21292413 (Version 1)
Quarter: 2022Q3

REPORT INFORMATION
  Report Type: Spontaneous
  Country: US (occurrence: US)
  Receive Date: 20220905
  Receipt Date: 20220905
  Transmission Date: 20221026
  Serious: Yes (Hospitalization, Other)
  Sender: FDA-Public Use
  Company Number: US-BRISTOL-MYERS SQUIBB COMPANY-2022-098032

PATIENT
  Age: 92 Year
  Sex: Male
  Weight: 73.48 kg

DRUGS (5)
  1. ELIQUIS [Suspect]
     Active Substance: APIXABAN
     Indication: Deep vein thrombosis
     Dosage: DOSE : UNAVAILABLE (NOT PROVIDED);     FREQ : TWO TIMES A DAY
     Route: 048
     Dates: start: 202205
  2. METOPROLOL [Concomitant]
     Active Substance: METOPROLOL
     Indication: Product used for unknown indication
     Route: 065
  3. FISH OIL [Concomitant]
     Active Substance: FISH OIL
     Indication: Product used for unknown indication
     Route: 065
  4. VITAMIN B12 [Concomitant]
     Active Substance: CYANOCOBALAMIN
     Indication: Product used for unknown indication
     Route: 065
  5. ASPIRIN[ACETYL SALICYLIC ACID] [Concomitant]
     Indication: Product used for unknown indication
     Route: 065

REACTIONS (2)
  - Chest pain [Unknown]
  - Cardiac valve disease [Unknown]
